FAERS Safety Report 7047230-0 (Version None)
Quarter: 2010Q4

REPORT INFORMATION
  Report Type: 
  Country: None (occurrence: None)
  Receive Date: 20101015
  Receipt Date: 20101004
  Transmission Date: 20110411
  Serious: Yes (Hospitalization, Other)
  Sender: FDA-Public Use
  Company Number: US-ELI_LILLY_AND_COMPANY-US201009006757

PATIENT
  Sex: Male

DRUGS (19)
  1. GEMCITABINE HCL [Suspect]
     Indication: PANCREATIC CARCINOMA
     Dosage: 1000 MG/M2 (1890) UNKNOWN
     Route: 065
     Dates: start: 20100514
  2. GEMCITABINE HCL [Suspect]
     Dosage: 1512 MG, UNKNOWN
     Route: 065
     Dates: start: 20100910
  3. LIDODERM [Concomitant]
     Indication: PAIN
     Dates: start: 20100428
  4. OXYCODONE HCL [Concomitant]
     Indication: ABDOMINAL PAIN
     Dosage: UNK, UNK
     Route: 048
     Dates: start: 20100101
  5. OXYCONTIN [Concomitant]
     Indication: PAIN
     Dosage: UNK, UNK
     Route: 048
     Dates: start: 20100101
  6. OXYCONTIN [Concomitant]
     Route: 048
     Dates: start: 20100917
  7. ATIVAN [Concomitant]
     Indication: INSOMNIA
     Route: 048
     Dates: start: 20100101
  8. EFFEXOR [Concomitant]
     Indication: DEPRESSION
     Route: 048
     Dates: start: 20100101
  9. NEXIUM [Concomitant]
     Indication: GASTROOESOPHAGEAL REFLUX DISEASE
     Route: 048
     Dates: start: 20100419
  10. LIPITOR [Concomitant]
     Indication: HYPERCHOLESTEROLAEMIA
     Route: 048
     Dates: start: 20100419
  11. LOVAZA [Concomitant]
     Indication: VITAMIN SUPPLEMENTATION
     Route: 048
     Dates: start: 20100419
  12. LUNESTA [Concomitant]
     Indication: INSOMNIA
     Route: 048
     Dates: start: 20100401
  13. ULTRASE MT20 [Concomitant]
     Indication: MALABSORPTION
     Route: 048
     Dates: start: 20100507
  14. SENNA [Concomitant]
     Route: 048
     Dates: start: 20100507
  15. COMPAZINE [Concomitant]
     Indication: NAUSEA
     Dates: start: 20100514
  16. ASPIRIN [Concomitant]
     Indication: PAIN
     Route: 048
     Dates: start: 20100507
  17. COLACE [Concomitant]
     Indication: CONSTIPATION
     Route: 048
     Dates: start: 20100501
  18. KYTRIL [Concomitant]
     Indication: PROPHYLAXIS
     Route: 048
     Dates: start: 20100514
  19. CREON [Concomitant]
     Indication: PANCREATIC ENZYMES
     Route: 048
     Dates: start: 20100903

REACTIONS (3)
  - ALANINE AMINOTRANSFERASE INCREASED [None]
  - ASPARTATE AMINOTRANSFERASE INCREASED [None]
  - CHOLANGITIS [None]
